FAERS Safety Report 8073843-3 (Version None)
Quarter: 2012Q1

REPORT INFORMATION
  Report Type: 
  Country: None (occurrence: None)
  Receive Date: 20120126
  Receipt Date: 20120120
  Transmission Date: 20120608
  Serious: Yes (Hospitalization)
  Sender: FDA-Public Use
  Company Number: GB-ROCHE-1032570

PATIENT
  Age: 51 Year
  Sex: Female

DRUGS (5)
  1. GARLIC [Concomitant]
  2. TRASTUZUMAB [Suspect]
     Indication: PRODUCT USED FOR UNKNOWN INDICATION
  3. LOVAZA [Concomitant]
  4. FERROUS SULFATE TAB [Concomitant]
  5. IBUPROFEN [Concomitant]

REACTIONS (1)
  - HEPATIC FUNCTION ABNORMAL [None]
